FAERS Safety Report 5779156-4 (Version None)
Quarter: 2008Q2

REPORT INFORMATION
  Report Type: 
  Country: None (occurrence: None)
  Receive Date: 20080619
  Receipt Date: 20080613
  Transmission Date: 20081010
  Serious: Yes (Death)
  Sender: FDA-Public Use
  Company Number: FR-BRISTOL-MYERS SQUIBB COMPANY-14233159

PATIENT
  Age: 80 Year
  Sex: Female

DRUGS (8)
  1. GLUCOPHAGE [Suspect]
     Indication: TYPE 2 DIABETES MELLITUS
     Dates: end: 20080513
  2. DIAMICRON [Concomitant]
  3. PREVISCAN [Concomitant]
  4. FLECAINIDE ACETATE [Concomitant]
  5. AMLODIPINE [Concomitant]
     Dosage: 1 DF = 5 UNIT NOT SPECFIED.
  6. ZOCOR [Concomitant]
     Dosage: 1 DF = 40 UNIT NOT SPECIFIED.
  7. RABEPRAZOLE SODIUM [Concomitant]
     Dosage: 1 DF = 10 UNIT NOT SPECFIED.
  8. SEROPLEX [Concomitant]

REACTIONS (2)
  - CARDIO-RESPIRATORY ARREST [None]
  - LACTIC ACIDOSIS [None]
